FAERS Safety Report 5442522-0 (Version None)
Quarter: 2007Q3

REPORT INFORMATION
  Report Type: 
  Country: None (occurrence: None)
  Receive Date: 20070830
  Receipt Date: 20070815
  Transmission Date: 20080115
  Serious: Yes (Other)
  Sender: FDA-Public Use
  Company Number: SPI200700450

PATIENT
  Age: 46 Year
  Sex: Female
  Weight: 82.1 kg

DRUGS (15)
  1. AMITIZA [Suspect]
     Indication: CONSTIPATION
     Dosage: 24 MCG, BID, ORAL
     Route: 048
     Dates: start: 20070301
  2. AMITIZA [Suspect]
     Indication: IRRITABLE BOWEL SYNDROME
     Dosage: 24 MCG, BID, ORAL
     Route: 048
     Dates: start: 20070301
  3. PREVACID [Concomitant]
  4. PROCARDIA XL [Concomitant]
  5. POTASSIUM CHLORIDE [Concomitant]
  6. SPIRONOLACTONE [Concomitant]
  7. WARFARIN SODIUM [Concomitant]
  8. DIAMOX [Concomitant]
  9. METOCLOPRAMIDE [Concomitant]
  10. LORAZEPAM [Concomitant]
  11. LEVOTHYROXINE SODIUM [Concomitant]
  12. LASIX [Concomitant]
  13. AMITRIPTYLINE HCL [Concomitant]
  14. HYDROCODONE W/APAP (HYDROCODONE, PARACETAMOL) [Concomitant]
  15. SYNTHROID [Concomitant]

REACTIONS (3)
  - ANXIETY [None]
  - BLOOD POTASSIUM DECREASED [None]
  - CEREBROVASCULAR ACCIDENT [None]
